FAERS Safety Report 7870117-8 (Version None)
Quarter: 2011Q4

REPORT INFORMATION
  Report Type: 
  Country: None (occurrence: None)
  Receive Date: 20111028
  Receipt Date: 20110113
  Transmission Date: 20120403
  Serious: No
  Sender: FDA-Public Use
  Company Number: US-AMGEN-USASP2011002224

PATIENT
  Age: 53 Year
  Sex: Female

DRUGS (2)
  1. PREDNISONE [Concomitant]
     Route: 048
  2. ENBREL [Suspect]
     Indication: RHEUMATOID ARTHRITIS
     Dosage: 50 MG, QWK
     Dates: start: 20101222

REACTIONS (1)
  - RHEUMATOID ARTHRITIS [None]
